FAERS Safety Report 6855590-6 (Version None)
Quarter: 2010Q3

REPORT INFORMATION
  Report Type: 
  Country: None (occurrence: None)
  Receive Date: 20100719
  Receipt Date: 20100706
  Transmission Date: 20110219
  Serious: Yes (Hospitalization)
  Sender: FDA-Public Use
  Company Number: US-BAYER-201020427NA

PATIENT
  Age: 48 Year
  Sex: Female
  Weight: 62 kg

DRUGS (10)
  1. YASMIN [Suspect]
     Indication: ORAL CONTRACEPTION
     Route: 048
     Dates: start: 20041001, end: 20081101
  2. OCELLA [Suspect]
     Indication: ORAL CONTRACEPTION
     Route: 048
     Dates: start: 20081101, end: 20091001
  3. WELLBUTRIN XL [Concomitant]
     Indication: DEPRESSION
     Dosage: UNIT DOSE: 300 MG
     Dates: start: 20060403
  4. CITALOPRAM HYDROBROMIDE [Concomitant]
     Indication: DEPRESSION
     Dates: start: 20060126
  5. NSAIDS [Concomitant]
  6. MINOCYCLINE [Concomitant]
  7. ANTIBIOTICS [Concomitant]
  8. SUDAFED 12 HOUR [Concomitant]
  9. THERAGRAN-M [Concomitant]
  10. COLACE [Concomitant]
     Dates: start: 20080701

REACTIONS (7)
  - ABDOMINAL ABSCESS [None]
  - ABDOMINAL PAIN UPPER [None]
  - CHOLELITHIASIS [None]
  - GALLBLADDER CANCER [None]
  - INCISION SITE PAIN [None]
  - INCISIONAL DRAINAGE [None]
  - NAUSEA [None]
